FAERS Safety Report 5193529-2 (Version None)
Quarter: 2006Q4

REPORT INFORMATION
  Report Type: 
  Country: None (occurrence: None)
  Receive Date: 20061228
  Receipt Date: 20060703
  Transmission Date: 20070319
  Serious: No
  Sender: FDA-Public Use
  Company Number: US-GLAXOSMITHKLINE-A0611002A

PATIENT
  Sex: Male

DRUGS (6)
  1. FLONASE [Suspect]
     Dosage: 50MCG TWICE PER DAY
     Route: 045
  2. NORVASC [Concomitant]
  3. CLARINEX [Concomitant]
  4. BUSPIRONE HCL [Concomitant]
  5. AVAPRO [Concomitant]
  6. TERAZOSIN HCL [Concomitant]

REACTIONS (1)
  - DRUG INEFFECTIVE [None]
